FAERS Safety Report 9777529 (Version 1)
Quarter: 2013Q4

REPORT INFORMATION
  Report Type: Report from Study
  Country: AR (occurrence: AR)
  Receive Date: 20131222
  Receipt Date: 20131222
  Transmission Date: 20140711
  Serious: Yes (Hospitalization, Other)
  Sender: FDA-Public Use
  Company Number: PHHY2013AR149889

PATIENT
  Age: 62 Year
  Sex: Female

DRUGS (2)
  1. DIOVAN [Suspect]
     Indication: HYPERTENSION
     Dosage: 1.5 DF, (160 MG) DAILY
     Route: 048
     Dates: end: 201312
  2. DIOVAN [Suspect]
     Dosage: 320 MG, UNK
     Route: 048
     Dates: start: 201312

REACTIONS (4)
  - Arrhythmia [Recovering/Resolving]
  - Condition aggravated [Recovering/Resolving]
  - Blood pressure increased [Recovering/Resolving]
  - Wrong technique in drug usage process [Unknown]
